FAERS Safety Report 5723148-8 (Version None)
Quarter: 2008Q2

REPORT INFORMATION
  Report Type: 
  Country: None (occurrence: None)
  Receive Date: 20080430
  Receipt Date: 20080425
  Transmission Date: 20081010
  Serious: Yes (Death, Hospitalization, Other)
  Sender: FDA-Public Use
  Company Number: PHBS2007JP17395

PATIENT
  Age: 69 Year
  Sex: Female
  Weight: 54 kg

DRUGS (12)
  1. GLEEVEC [Suspect]
     Indication: ACUTE LYMPHOCYTIC LEUKAEMIA
     Route: 048
     Dates: start: 20040422, end: 20040521
  2. GLEEVEC [Suspect]
     Route: 048
     Dates: start: 20070119, end: 20070208
  3. GLEEVEC [Suspect]
     Dosage: 400 MG, QD
     Route: 048
     Dates: start: 20070326, end: 20070331
  4. GLEEVEC [Suspect]
     Route: 048
     Dates: start: 20070425, end: 20070501
  5. GLEEVEC [Suspect]
     Route: 048
     Dates: start: 20070602, end: 20070606
  6. GLEEVEC [Suspect]
     Dosage: 400 MG, QD
     Route: 048
     Dates: start: 20070711, end: 20070715
  7. GLEEVEC [Suspect]
     Route: 048
     Dates: start: 20070822, end: 20070826
  8. GLEEVEC [Suspect]
     Route: 048
     Dates: start: 20070906, end: 20071003
  9. PREDONINE [Concomitant]
     Indication: ACUTE LYMPHOCYTIC LEUKAEMIA
     Dosage: 60 MG, QD
     Dates: start: 20070119, end: 20070208
  10. PREDONINE [Concomitant]
     Dosage: 60 MG, QD
     Route: 048
     Dates: start: 20070326, end: 20070331
  11. PREDONINE [Concomitant]
     Dosage: 60 MG, QD
     Route: 048
     Dates: start: 20070615
  12. ALLOGENIC TRANSPLANTATION [Suspect]
     Indication: ACUTE LYMPHOCYTIC LEUKAEMIA RECURRENT
     Dates: start: 20040616

REACTIONS (18)
  - ABDOMINAL DISTENSION [None]
  - ACUTE LYMPHOCYTIC LEUKAEMIA RECURRENT [None]
  - ALANINE AMINOTRANSFERASE INCREASED [None]
  - ASPARTATE AMINOTRANSFERASE INCREASED [None]
  - BONE MARROW FAILURE [None]
  - CHROMOSOMAL MUTATION [None]
  - DYSPNOEA [None]
  - GENERALISED OEDEMA [None]
  - LEUKAEMIC INFILTRATION EXTRAMEDULLARY [None]
  - LYMPHADENOPATHY [None]
  - MALAISE [None]
  - METABOLIC ACIDOSIS [None]
  - MULTI-ORGAN FAILURE [None]
  - NAUSEA [None]
  - NEOPLASM [None]
  - OXYGEN SATURATION DECREASED [None]
  - PLATELET COUNT DECREASED [None]
  - PYREXIA [None]
